FAERS Safety Report 18402414 (Version 1)
Quarter: 2020Q4

REPORT INFORMATION
  Report Type: Spontaneous
  Country: JP (occurrence: JP)
  Receive Date: 20201019
  Receipt Date: 20201019
  Transmission Date: 20210114
  Serious: Yes (Life-Threatening, Hospitalization, Other)
  Sender: FDA-Public Use
  Company Number: JP-ELI_LILLY_AND_COMPANY-JP202009009960

PATIENT
  Age: 85 Year
  Sex: Female

DRUGS (4)
  1. DULOXETINE HYDROCHLORIDE. [Suspect]
     Active Substance: DULOXETINE HYDROCHLORIDE
     Indication: BACK PAIN
  2. NORTRIPTYLINE [Concomitant]
     Active Substance: NORTRIPTYLINE
  3. LANSOPRAZOLE. [Concomitant]
     Active Substance: LANSOPRAZOLE
  4. DULOXETINE HYDROCHLORIDE. [Suspect]
     Active Substance: DULOXETINE HYDROCHLORIDE
     Indication: FRACTURE PAIN
     Dosage: 40 MG, DAILY
     Route: 048
     Dates: start: 202009, end: 202009

REACTIONS (8)
  - Malaise [Unknown]
  - Decreased appetite [Unknown]
  - Ileus [Unknown]
  - Cardiac failure [Unknown]
  - Inappropriate antidiuretic hormone secretion [Unknown]
  - Oedema [Unknown]
  - Off label use [Unknown]
  - Hyponatraemia [Recovered/Resolved]

NARRATIVE: CASE EVENT DATE: 202009
